FAERS Safety Report 5064234-8 (Version None)
Quarter: 2006Q3

REPORT INFORMATION
  Report Type: 
  Country: None (occurrence: None)
  Receive Date: 20060728
  Receipt Date: 20060719
  Transmission Date: 20061208
  Serious: Yes (Other)
  Sender: FDA-Public Use
  Company Number: US-JNJFOC-20060703933

PATIENT
  Sex: Male
  Weight: 66.68 kg

DRUGS (3)
  1. REMICADE [Suspect]
  2. REMICADE [Suspect]
     Indication: CROHN'S DISEASE
  3. IMURAN [Concomitant]
     Indication: CROHN'S DISEASE

REACTIONS (1)
  - PERONEAL NERVE PALSY [None]
